FAERS Safety Report 15740891 (Version 2)
Quarter: 2019Q1

REPORT INFORMATION
  Report Type: Spontaneous
  Country: JP (occurrence: JP)
  Receive Date: 20181219
  Receipt Date: 20190301
  Transmission Date: 20190417
  Serious: Yes (Other)
  Sender: FDA-Public Use
  Company Number: PHJP2018JP020786

PATIENT
  Sex: Female

DRUGS (4)
  1. GLIVEC [Interacting]
     Active Substance: IMATINIB MESYLATE
     Dosage: 300 MG, UNK
     Route: 048
  2. GLIVEC [Suspect]
     Active Substance: IMATINIB MESYLATE
     Indication: GASTROINTESTINAL STROMAL TUMOUR
     Dosage: 400 MG, UNK
     Route: 048
  3. GLIVEC [Interacting]
     Active Substance: IMATINIB MESYLATE
     Dosage: 200 MG, UNK
     Route: 048
  4. CLARITHROMYCIN. [Interacting]
     Active Substance: CLARITHROMYCIN
     Indication: MYCOBACTERIUM AVIUM COMPLEX INFECTION
     Dosage: 600 MG, UNK
     Route: 065

REACTIONS (3)
  - Mycobacterium avium complex infection [Unknown]
  - Neutrophil count decreased [Recovered/Resolved]
  - Drug interaction [Recovered/Resolved]

NARRATIVE: CASE EVENT DATE: 20171216
